FAERS Safety Report 5615478-5 (Version None)
Quarter: 2008Q1

REPORT INFORMATION
  Report Type: 
  Country: None (occurrence: None)
  Receive Date: 20080204
  Receipt Date: 20080204
  Transmission Date: 20080703
  Serious: Yes (Other)
  Sender: FDA-Public Use
  Company Number: None

PATIENT
  Age: 63 Year
  Sex: Female
  Weight: 108.8633 kg

DRUGS (1)
  1. FENTANYL TRANSDERMAL SYSTEM [Suspect]
     Indication: PAIN
     Dosage: APPLY 1 PATCH TO SKIN EVERY 72 HOURS FOR PAIN
     Dates: start: 20071201

REACTIONS (3)
  - PHARMACEUTICAL PRODUCT COMPLAINT [None]
  - SKIN IRRITATION [None]
  - WRONG TECHNIQUE IN DRUG USAGE PROCESS [None]
